FAERS Safety Report 14152277 (Version 2)
Quarter: 2019Q2

REPORT INFORMATION
  Report Type: Spontaneous
  Country: US (occurrence: US)
  Receive Date: 20171102
  Receipt Date: 20190625
  Transmission Date: 20190711
  Serious: Yes (Death, Hospitalization, Other)
  Sender: FDA-Public Use
  Company Number: US-009507513-1711USA000745

PATIENT
  Sex: Male
  Weight: 92.52 kg

DRUGS (3)
  1. JANUVIA [Suspect]
     Active Substance: SITAGLIPTIN PHOSPHATE
     Indication: TYPE 2 DIABETES MELLITUS
     Dosage: 50 MILLIGRAM UNK
     Route: 048
     Dates: start: 20151107, end: 201512
  2. ASPIRIN. [Concomitant]
     Active Substance: ASPIRIN
     Indication: PAIN
     Dosage: UNK
     Dates: start: 20121205, end: 20151101
  3. JANUMET [Suspect]
     Active Substance: METFORMIN HYDROCHLORIDE\SITAGLIPTIN PHOSPHATE
     Indication: TYPE 2 DIABETES MELLITUS
     Dosage: 50 MILLIGRAM, TWICE DAILY
     Route: 048
     Dates: start: 20141003, end: 201511

REACTIONS (18)
  - Pancreatic carcinoma [Fatal]
  - Myocardial infarction [Unknown]
  - Depression [Unknown]
  - Dyspepsia [Unknown]
  - Constipation [Not Recovered/Not Resolved]
  - Fatigue [Not Recovered/Not Resolved]
  - Metastases to liver [Fatal]
  - Bladder operation [Unknown]
  - Duodenitis [Not Recovered/Not Resolved]
  - Gastritis [Not Recovered/Not Resolved]
  - Dizziness [Unknown]
  - Prostatic operation [Unknown]
  - Arrhythmia [Unknown]
  - Ulcer [Unknown]
  - Nasal congestion [Unknown]
  - Renal cyst [Not Recovered/Not Resolved]
  - Eye pruritus [Unknown]
  - Pyelonephritis [Not Recovered/Not Resolved]

NARRATIVE: CASE EVENT DATE: 20141124
